FAERS Safety Report 9323547 (Version 2)
Quarter: 2013Q3

REPORT INFORMATION
  Report Type: Spontaneous
  Country: US (occurrence: US)
  Receive Date: 20130603
  Receipt Date: 20130730
  Transmission Date: 20140515
  Serious: No
  Sender: FDA-Public Use
  Company Number: US-009507513-1305USA016894

PATIENT
  Age: 21 Year
  Sex: Female
  Weight: 122.45 kg

DRUGS (1)
  1. NEXPLANON [Suspect]
     Dosage: UNK
     Route: 059
     Dates: start: 20130501, end: 20130523

REACTIONS (3)
  - Device kink [Recovered/Resolved]
  - Device dislocation [Recovered/Resolved]
  - Implant site pain [Recovered/Resolved]
